FAERS Safety Report 24841733 (Version 1)
Quarter: 2025Q1

REPORT INFORMATION
  Report Type: Spontaneous
  Country: US (occurrence: US)
  Receive Date: 20250114
  Receipt Date: 20250114
  Transmission Date: 20250409
  Serious: Yes (Other)
  Sender: USAntibiotics
  Company Number: US-USAntibiotics-000384

PATIENT
  Age: 71 Year
  Sex: Female

DRUGS (1)
  1. AUGMENTIN [Suspect]
     Active Substance: AMOXICILLIN\CLAVULANATE POTASSIUM
     Indication: Product used for unknown indication
     Dates: start: 20241121

REACTIONS (1)
  - Clostridium difficile infection [Unknown]

NARRATIVE: CASE EVENT DATE: 20241209
